FAERS Safety Report 7608559-8 (Version None)
Quarter: 2011Q3

REPORT INFORMATION
  Report Type: 
  Country: None (occurrence: None)
  Receive Date: 20110714
  Receipt Date: 20110704
  Transmission Date: 20111222
  Serious: Yes (Other)
  Sender: FDA-Public Use
  Company Number: PHFR2011GB01426

PATIENT
  Sex: Female

DRUGS (6)
  1. VALPROATE SODIUM [Concomitant]
     Dosage: 600 MG/DAY
  2. HYOSCINE HYDROBROMIDE [Concomitant]
     Indication: SALIVARY HYPERSECRETION
     Dosage: 300 UG, DAILY
     Route: 048
  3. FLUOXETINE [Concomitant]
     Dosage: 40 MG, DAILY
  4. OLANZAPINE [Concomitant]
     Dosage: 7.5 MG, DAILY
     Route: 048
  5. CLOZAPINE [Suspect]
     Indication: SCHIZOPHRENIA
     Dosage: 150 MG MANE, 200 MG NOCTE
     Route: 048
     Dates: start: 20110111
  6. CLOZAPINE [Suspect]
     Dosage: 250 MG DAILY

REACTIONS (4)
  - MYOCLONUS [None]
  - LOWER RESPIRATORY TRACT INFECTION [None]
  - MUSCLE TWITCHING [None]
  - PARTIAL SEIZURES [None]
